FAERS Safety Report 5025044-0 (Version None)
Quarter: 2006Q2

REPORT INFORMATION
  Report Type: 
  Country: None (occurrence: None)
  Receive Date: 20060608
  Receipt Date: 20060608
  Transmission Date: 20061013
  Serious: Yes (Other)
  Sender: FDA-Public Use
  Company Number: None

PATIENT
  Age: 48 Year
  Sex: Female
  Weight: 63.5036 kg

DRUGS (6)
  1. NIMODIPINE [Suspect]
     Indication: BIPOLAR DISORDER
     Dosage: 1 Q AM PO
     Route: 048
     Dates: start: 20060416, end: 20060419
  2. LAMICTAL [Concomitant]
  3. ATIVAN [Concomitant]
  4. SYNTHROID [Concomitant]
  5. CYTOMEL [Concomitant]
  6. DEXEDRINE [Concomitant]

REACTIONS (3)
  - GINGIVAL BLEEDING [None]
  - HAEMORRHAGE [None]
  - INCREASED TENDENCY TO BRUISE [None]
